FAERS Safety Report 8048608-9 (Version None)
Quarter: 2012Q1

REPORT INFORMATION
  Report Type: 
  Country: None (occurrence: None)
  Receive Date: 20120117
  Receipt Date: 20120113
  Transmission Date: 20120608
  Serious: Yes (Hospitalization)
  Sender: FDA-Public Use
  Company Number: FI-PFIZER INC-2012010162

PATIENT
  Age: 70 Year
  Sex: Female

DRUGS (8)
  1. SERETIDE EVOHALER [Concomitant]
     Dosage: 50/500 UG, TWICE DAILY
     Route: 055
  2. LANTUS [Concomitant]
     Dosage: 100 IU/ML, UNK
     Route: 058
  3. RIVATRIL [Concomitant]
     Dosage: 0.5 MG, 3X/DAY
     Route: 048
  4. NOVORAPID [Concomitant]
     Dosage: 100 U/ML
     Route: 058
  5. VALPROIC ACID [Concomitant]
     Dosage: 600 MG, 2X/DAY
     Route: 048
  6. FURESIS [Concomitant]
     Dosage: 20 MG, 1X/DAY
     Route: 048
  7. ROTIGOTINE [Concomitant]
     Dosage: 2MG/24H, ONCE DAILY
     Route: 062
  8. PIPERACILLIN AND TAZOBACTAM [Suspect]
     Indication: PYELONEPHRITIS
     Dosage: 4 G, 3X/DAY
     Route: 042
     Dates: start: 20111128, end: 20111205

REACTIONS (2)
  - COAGULATION FACTOR DEFICIENCY [None]
  - CEREBRAL HAEMORRHAGE [None]
